FAERS Safety Report 6819512-6 (Version None)
Quarter: 2010Q3

REPORT INFORMATION
  Report Type: 
  Country: None (occurrence: None)
  Receive Date: 20100707
  Receipt Date: 20100624
  Transmission Date: 20110219
  Serious: Yes (Hospitalization, Other)
  Sender: FDA-Public Use
  Company Number: PHHY2010CA25692

PATIENT
  Sex: Female

DRUGS (8)
  1. ACLASTA [Suspect]
     Indication: OSTEOPOROSIS
     Dosage: 5 MG, ONCE/SINGLE
     Route: 042
     Dates: start: 20100419
  2. AGGRENOX [Concomitant]
     Dosage: 25 MG, BID
     Route: 048
  3. COVERSYL [Concomitant]
     Dosage: 4 MG, QD
     Route: 048
  4. CALCIUM CITRATE [Concomitant]
     Dosage: 1000 MG, QD
     Route: 048
  5. VITAMIN C [Concomitant]
     Dosage: 500 MG, QD
     Route: 048
  6. SIMVASTATIN [Concomitant]
     Dosage: 80 MG, QD
     Route: 048
  7. NOVAMOXIN [Concomitant]
     Dosage: 250 MG, QD
     Route: 048
  8. ACETAMINOPHEN [Concomitant]
     Dosage: 1 G, UNK
     Route: 048

REACTIONS (8)
  - ABASIA [None]
  - CEREBROVASCULAR ACCIDENT [None]
  - GRIP STRENGTH DECREASED [None]
  - MALAISE [None]
  - MUSCULAR WEAKNESS [None]
  - PAIN IN EXTREMITY [None]
  - PARAESTHESIA [None]
  - PARALYSIS [None]
